FAERS Safety Report 9095316 (Version 1)
Quarter: 2013Q1

REPORT INFORMATION
  Report Type: Spontaneous
  Country: US (occurrence: None)
  Receive Date: 20130123
  Receipt Date: 20130123
  Transmission Date: 20140127
  Serious: Yes (Death, Hospitalization)
  Sender: FDA-Public Use
  Company Number: 2012US-004471

PATIENT
  Age: 93 Year
  Sex: Male

DRUGS (6)
  1. OMONTYS (PEGINESATIDE) SOLUTION FOR INJECTION [Suspect]
     Indication: NEPHROGENIC ANAEMIA
     Dosage: 6 MG,  Q MONTHLY,  INTRAVENOUS
     Route: 042
     Dates: start: 20121020, end: 20121020
  2. COREG (CARVEDILOL) [Concomitant]
  3. FOLIC ACID (FOLIC ACID) [Concomitant]
  4. RENA-VITE (ASCORBIC ACID, BIOTIN, CALCIUM PANTOTHENATE, CYANOCOBALAMIN, FOLIC ACID, NICOTINAMIDE, PYRIDOXINE HYDROCHLORIDE, RIBOFLAVIN, THIAMINE HYDROCHLORIDE) [Concomitant]
  5. MEGESTROL (MEGESTROL) [Concomitant]
  6. FINASTERIDE (FINASTERIDE) [Concomitant]

REACTIONS (4)
  - Medical device complication [None]
  - Haemoglobin decreased [None]
  - Device related infection [None]
  - Bacterial infection [None]
